FAERS Safety Report 9472955 (Version 4)
Quarter: 2014Q2

REPORT INFORMATION
  Report Type: Report from Study
  Country: GB (occurrence: GB)
  Receive Date: 20130823
  Receipt Date: 20140403
  Transmission Date: 20141212
  Serious: Yes (Hospitalization)
  Sender: FDA-Public Use
  Company Number: NL-SANOFI-AVENTIS-2013SA082787

PATIENT
  Age: 78 Year
  Sex: Female

DRUGS (16)
  1. AFLIBERCEPT [Suspect]
     Indication: COLORECTAL CANCER METASTATIC
     Route: 041
     Dates: start: 20130528, end: 20130528
  2. AFLIBERCEPT [Suspect]
     Indication: COLORECTAL CANCER METASTATIC
     Route: 041
     Dates: start: 20130806, end: 20130806
  3. IRINOTECAN [Suspect]
     Indication: COLORECTAL CANCER METASTATIC
     Route: 041
     Dates: start: 20130528, end: 20130528
  4. IRINOTECAN [Suspect]
     Indication: COLORECTAL CANCER METASTATIC
     Route: 041
     Dates: start: 20130806, end: 20130806
  5. 5-FU [Suspect]
     Indication: COLORECTAL CANCER METASTATIC
     Route: 040
     Dates: start: 20130528, end: 20130528
  6. 5-FU [Suspect]
     Indication: COLORECTAL CANCER METASTATIC
     Route: 041
     Dates: start: 20130528
  7. 5-FU [Suspect]
     Indication: COLORECTAL CANCER METASTATIC
     Route: 041
     Dates: start: 20130806, end: 20130806
  8. 5-FU [Suspect]
     Indication: COLORECTAL CANCER METASTATIC
     Route: 040
     Dates: start: 20130806
  9. LEUCOVORIN [Suspect]
     Indication: COLORECTAL CANCER METASTATIC
     Route: 041
     Dates: start: 20130528, end: 20130528
  10. LEUCOVORIN [Suspect]
     Indication: COLORECTAL CANCER METASTATIC
     Route: 041
     Dates: start: 20130806, end: 20130806
  11. ANALGESICS [Concomitant]
     Dates: start: 20130604
  12. LOPERAMIDE [Concomitant]
     Indication: PROPHYLAXIS
     Dates: start: 201009
  13. PREDNISOLONE [Concomitant]
     Dates: start: 2010
  14. TRAMADOL [Concomitant]
     Dates: start: 2010
  15. CODEINE PHOSPHATE [Concomitant]
     Dates: start: 200309
  16. CLEXANE [Concomitant]
     Indication: PROPHYLAXIS
     Dates: start: 20130604, end: 20131105

REACTIONS (3)
  - Angina pectoris [Recovered/Resolved]
  - Diarrhoea [Recovered/Resolved]
  - Diarrhoea [Recovered/Resolved]
